FAERS Safety Report 12692451 (Version 2)
Quarter: 2017Q1

REPORT INFORMATION
  Report Type: Spontaneous
  Country: CA (occurrence: CA)
  Receive Date: 20160829
  Receipt Date: 20170203
  Transmission Date: 20170428
  Serious: Yes (Hospitalization)
  Sender: FDA-Public Use
  Company Number: CA-ROCHE-1652998

PATIENT
  Age: 57 Year
  Sex: Female

DRUGS (13)
  1. ACTEMRA [Suspect]
     Active Substance: TOCILIZUMAB
     Indication: PRODUCT USED FOR UNKNOWN INDICATION
     Route: 042
     Dates: start: 20111026, end: 2012
  2. PLAQUENIL [Suspect]
     Active Substance: HYDROXYCHLOROQUINE SULFATE
     Indication: RHEUMATOID ARTHRITIS
     Route: 048
  3. CORTISONE [Concomitant]
     Active Substance: CORTISONE\HYDROCORTISONE
  4. ROSUVASTATIN. [Concomitant]
     Active Substance: ROSUVASTATIN
  5. BETAHISTAMINE [Concomitant]
  6. RITUXAN [Suspect]
     Active Substance: RITUXIMAB
     Indication: RHEUMATOID ARTHRITIS
     Route: 042
     Dates: start: 2012, end: 2015
  7. ARAVA [Suspect]
     Active Substance: LEFLUNOMIDE
     Indication: RHEUMATOID ARTHRITIS
     Dosage: AS NEEDED
     Route: 048
     Dates: start: 20080916, end: 20091022
  8. XELJANZ [Concomitant]
     Active Substance: TOFACITINIB CITRATE
     Indication: RHEUMATOID ARTHRITIS
     Route: 048
     Dates: start: 20151106
  9. REMICADE [Suspect]
     Active Substance: INFLIXIMAB
     Indication: RHEUMATOID ARTHRITIS
     Route: 042
     Dates: start: 20090625, end: 20091022
  10. VITAMIN C [Concomitant]
     Active Substance: ASCORBIC ACID
  11. METHOTREXATE SODIUM. [Suspect]
     Active Substance: METHOTREXATE SODIUM
     Indication: RHEUMATOID ARTHRITIS
     Route: 048
     Dates: start: 20080916, end: 20091022
  12. RITUXAN [Suspect]
     Active Substance: RITUXIMAB
     Route: 042
  13. SULFASALAZINE. [Suspect]
     Active Substance: SULFASALAZINE
     Indication: RHEUMATOID ARTHRITIS
     Route: 048

REACTIONS (14)
  - Blood creatine phosphokinase increased [Unknown]
  - Drug ineffective [Unknown]
  - Vitamin D decreased [Unknown]
  - Jaundice [Unknown]
  - Rheumatoid arthritis [Unknown]
  - Haematemesis [Unknown]
  - Nausea [Unknown]
  - Hepatitis [Unknown]
  - Treatment failure [Unknown]
  - Hepatotoxicity [Unknown]
  - Condition aggravated [Unknown]
  - Vomiting [Unknown]
  - Platelet count increased [Unknown]
  - Joint swelling [Unknown]

NARRATIVE: CASE EVENT DATE: 201510
